FAERS Safety Report 9680957 (Version 1)
Quarter: 2013Q4

REPORT INFORMATION
  Report Type: Spontaneous
  Country: US (occurrence: US)
  Receive Date: 20131111
  Receipt Date: 20131111
  Transmission Date: 20140711
  Serious: Yes (Other)
  Sender: FDA-Public Use
  Company Number: US-TEVA-442669USA

PATIENT
  Age: 64 Year
  Sex: Male

DRUGS (2)
  1. TREANDA [Suspect]
     Indication: CHRONIC LYMPHOCYTIC LEUKAEMIA
     Dosage: DAYS 1 AND 2
     Dates: start: 20130917
  2. RITUXAN [Concomitant]
     Dosage: DAY 1

REACTIONS (3)
  - Pancytopenia [Not Recovered/Not Resolved]
  - Haematology test abnormal [Not Recovered/Not Resolved]
  - Neutropenia [Not Recovered/Not Resolved]
